FAERS Safety Report 9684691 (Version 1)
Quarter: 2013Q4

REPORT INFORMATION
  Report Type: Spontaneous
  Country: US (occurrence: None)
  Receive Date: 20131108
  Receipt Date: 20131108
  Transmission Date: 20140711
  Serious: Yes (Other)
  Sender: FDA-Public Use
  Company Number: ACO_39294_2013

PATIENT
  Age: 69 Year
  Sex: Male

DRUGS (1)
  1. AMPYRA [Suspect]
     Indication: PRODUCT USED FOR UNKNOWN INDICATION
     Dates: start: 20130418, end: 20131030

REACTIONS (3)
  - Convulsion [None]
  - Inappropriate schedule of drug administration [None]
  - Drug ineffective [None]
